FAERS Safety Report 5808938-5 (Version None)
Quarter: 2008Q3

REPORT INFORMATION
  Report Type: 
  Country: None (occurrence: None)
  Receive Date: 20080714
  Receipt Date: 20080701
  Transmission Date: 20090109
  Serious: Yes (Death, Life-Threatening, Hospitalization)
  Sender: FDA-Public Use
  Company Number: DE-ROCHE-570845

PATIENT
  Sex: Male
  Weight: 74 kg

DRUGS (3)
  1. PEGASYS [Suspect]
     Indication: HEPATITIS C
     Route: 058
     Dates: start: 20070830, end: 20080604
  2. COPEGUS [Suspect]
     Indication: HEPATITIS C
     Route: 048
     Dates: start: 20070830, end: 20080604
  3. HEROIN [Suspect]
     Indication: DRUG ABUSE
     Route: 042
     Dates: start: 20021001, end: 20080401

REACTIONS (2)
  - SEPTIC SHOCK [None]
  - SUBDIAPHRAGMATIC ABSCESS [None]
